FAERS Safety Report 9229223 (Version 2)
Quarter: 2013Q4

REPORT INFORMATION
  Report Type: Spontaneous
  Country: US (occurrence: US)
  Receive Date: 20130412
  Receipt Date: 20131226
  Transmission Date: 20140711
  Serious: Yes (Hospitalization, Other)
  Sender: FDA-Public Use
  Company Number: US-ASTELLAS-2012US010515

PATIENT
  Age: 47 Year
  Sex: Female
  Weight: 55 kg

DRUGS (1)
  1. PROGRAF [Suspect]
     Indication: LUNG TRANSPLANT
     Dosage: 6 MG, BID
     Route: 048
     Dates: start: 20071010

REACTIONS (8)
  - Off label use [Unknown]
  - Drug ineffective [Unknown]
  - Investigation [Recovered/Resolved]
  - Endocarditis [Unknown]
  - Lung transplant rejection [Unknown]
  - Renal failure [Recovered/Resolved]
  - Pulmonary oedema [Recovered/Resolved]
  - Malaise [Not Recovered/Not Resolved]
